FAERS Safety Report 14853330 (Version 1)
Quarter: 2018Q2

REPORT INFORMATION
  Report Type: Spontaneous
  Country: US (occurrence: US)
  Receive Date: 20180507
  Receipt Date: 20180507
  Transmission Date: 20180711
  Serious: Yes (Other)
  Sender: FDA-Public Use
  Company Number: US-BAYER-2018-083042

PATIENT
  Age: 65 Year
  Sex: Male
  Weight: 84 kg

DRUGS (3)
  1. ALEVE [Suspect]
     Active Substance: NAPROXEN SODIUM
     Indication: INFLAMMATION
     Dosage: UNK UNK, QD
     Route: 048
     Dates: start: 201803, end: 201804
  2. ALEVE [Suspect]
     Active Substance: NAPROXEN SODIUM
     Indication: INFLAMMATION
     Dosage: 3.5 DF, UNK
     Route: 048
     Dates: start: 201803, end: 201804
  3. ALEVE [Suspect]
     Active Substance: NAPROXEN SODIUM
     Indication: INFLAMMATION
     Dosage: 4.5 DF, UNK
     Route: 048
     Dates: start: 201803, end: 201804

REACTIONS (6)
  - Wrong technique in product usage process [Unknown]
  - Incorrect dosage administered [Unknown]
  - Product use in unapproved indication [Unknown]
  - Product use issue [Unknown]
  - Haemorrhoids [Not Recovered/Not Resolved]
  - Haematochezia [Not Recovered/Not Resolved]

NARRATIVE: CASE EVENT DATE: 201803
